FAERS Safety Report 12782580 (Version 1)
Quarter: 2016Q3

REPORT INFORMATION
  Report Type: Spontaneous
  Country: AT (occurrence: AT)
  Receive Date: 20160927
  Receipt Date: 20160927
  Transmission Date: 20161109
  Serious: Yes (Hospitalization, Other)
  Sender: FDA-Public Use
  Company Number: AT-CIPLA LTD.-2016AT18556

PATIENT

DRUGS (4)
  1. LAMOTRIGINE. [Suspect]
     Active Substance: LAMOTRIGINE
     Dosage: 200 MG PER DAY
     Route: 065
  2. LAMOTRIGINE. [Suspect]
     Active Substance: LAMOTRIGINE
     Dosage: 300 MG, PER DAY (AFTER TWO WEEKS)
     Route: 065
  3. LAMOTRIGINE. [Suspect]
     Active Substance: LAMOTRIGINE
     Dosage: 100 MG, PER DAY
     Route: 065
  4. LAMOTRIGINE. [Suspect]
     Active Substance: LAMOTRIGINE
     Indication: EPILEPSY
     Dosage: 100 MG, PER DAY
     Route: 065

REACTIONS (5)
  - Syncope [Recovered/Resolved]
  - Hypertrophic cardiomyopathy [Recovered/Resolved]
  - Complex partial seizures [Unknown]
  - Hyperthermia malignant [Unknown]
  - Metabolic myopathy [Unknown]

NARRATIVE: CASE EVENT DATE: 200812
